FAERS Safety Report 10232692 (Version 4)
Quarter: 2014Q3

REPORT INFORMATION
  Report Type: Spontaneous
  Country: US (occurrence: US)
  Receive Date: 20140612
  Receipt Date: 20140714
  Transmission Date: 20150326
  Serious: Yes (Other)
  Sender: FDA-Public Use
  Company Number: US-AMGEN-USASP2014038249

PATIENT
  Age: 53 Year
  Sex: Female
  Weight: 62.13 kg

DRUGS (11)
  1. ABILIFY [Concomitant]
     Active Substance: ARIPIPRAZOLE
     Dosage: 2 MG, QD
  2. ESTRADIOL. [Concomitant]
     Active Substance: ESTRADIOL
     Dosage: 2 MG,(2MG1/2) QHS
     Route: 048
  3. OMEPRAZOLE. [Concomitant]
     Active Substance: OMEPRAZOLE
     Dosage: 40 MG, QD
  4. B12                                /00056201/ [Concomitant]
     Dosage: UNK UNK, QWK
     Route: 058
  5. CYMBALTA [Concomitant]
     Active Substance: DULOXETINE HYDROCHLORIDE
     Dosage: 60 MG, QD
  6. ZOLPIDEM [Concomitant]
     Active Substance: ZOLPIDEM\ZOLPIDEM TARTRATE
     Dosage: 12.5 MG, QHS(AS NECESSARY)
     Route: 048
  7. PLAQUENIL [Concomitant]
     Active Substance: HYDROXYCHLOROQUINE SULFATE
  8. DICLOFENAC [Concomitant]
     Active Substance: DICLOFENAC
     Dosage: 75 MG, QD
  9. PROLIA [Suspect]
     Active Substance: DENOSUMAB
     Indication: OSTEOPOROSIS POSTMENOPAUSAL
     Dosage: 60 MG, Q6MO
     Route: 058
     Dates: start: 20140403
  10. TRAMADOL [Concomitant]
     Active Substance: TRAMADOL
     Dosage: 50 MG, QID(AS NECESSARY)
  11. LORAZEPAM. [Concomitant]
     Active Substance: LORAZEPAM
     Dosage: 0.5 MG, QD(AS NECESSARY)

REACTIONS (32)
  - Blood potassium abnormal [Unknown]
  - Blood urine present [Unknown]
  - Skin discolouration [Unknown]
  - Angioedema [Not Recovered/Not Resolved]
  - Tri-iodothyronine increased [Unknown]
  - Rash generalised [Not Recovered/Not Resolved]
  - Hypersensitivity [Not Recovered/Not Resolved]
  - Tachycardia [Not Recovered/Not Resolved]
  - Diarrhoea [Not Recovered/Not Resolved]
  - Arthralgia [Not Recovered/Not Resolved]
  - Face oedema [Not Recovered/Not Resolved]
  - Dyspnoea [Unknown]
  - Abdominal pain [Not Recovered/Not Resolved]
  - Pruritus [Unknown]
  - Eosinophilia [Not Recovered/Not Resolved]
  - Sunburn [Unknown]
  - Back pain [Unknown]
  - Contusion [Not Recovered/Not Resolved]
  - Laryngeal oedema [Not Recovered/Not Resolved]
  - Rash [Not Recovered/Not Resolved]
  - Crying [Unknown]
  - Joint swelling [Unknown]
  - Haematuria [Not Recovered/Not Resolved]
  - Swelling [Not Recovered/Not Resolved]
  - Urticaria [Not Recovered/Not Resolved]
  - Peripheral swelling [Unknown]
  - Blister [Unknown]
  - Drug hypersensitivity [Unknown]
  - Erythema [Unknown]
  - Chest pain [Not Recovered/Not Resolved]
  - White blood cell count increased [Unknown]
  - Oedema [Unknown]

NARRATIVE: CASE EVENT DATE: 201404
